FAERS Safety Report 4394329-3 (Version None)
Quarter: 2004Q3

REPORT INFORMATION
  Report Type: 
  Country: None (occurrence: None)
  Receive Date: 20040706
  Receipt Date: 20040623
  Transmission Date: 20050211
  Serious: Yes (Other)
  Sender: FDA-Public Use
  Company Number: 2004042111

PATIENT
  Age: 80 Year
  Sex: Female

DRUGS (5)
  1. LIPITOR [Suspect]
     Indication: BLOOD CHOLESTEROL
     Dosage: 10 MG (10 MG, 1 IN 1 D)
     Dates: start: 19940101
  2. AMLODIPINE BESYLATE [Concomitant]
  3. METORPOLOL (METOPROLOL) [Concomitant]
  4. HYDROCHLOROTHIAZIDE [Concomitant]
  5. GLIMEPIRIDE [Concomitant]

REACTIONS (7)
  - ABDOMINAL DISTENSION [None]
  - ABDOMINAL HERNIA [None]
  - ABDOMINAL PAIN [None]
  - CONSTIPATION [None]
  - FLATULENCE [None]
  - PSYCHOTIC DISORDER [None]
  - SPINAL COLUMN STENOSIS [None]
